FAERS Safety Report 8761734 (Version 2)
Quarter: 2012Q4

REPORT INFORMATION
  Report Type: Spontaneous
  Country: JP (occurrence: None)
  Receive Date: 20120822
  Receipt Date: 20120905
  Transmission Date: 20130627
  Serious: No
  Sender: FDA-Public Use
  Company Number: JP-2012-16036

PATIENT
  Age: 74 Year
  Sex: Male
  Weight: 55 kg

DRUGS (11)
  1. SAMSCA (TOLVAPTAN) TABLET [Suspect]
     Indication: FLUID RETENTION
     Route: 048
     Dates: start: 20120711
  2. MUCOSOLVAN (AMBROXOL HYDROCHLORIDE) [Concomitant]
  3. CRAVIT (LEVOFLOXACIN) [Concomitant]
  4. MYOCOR (GLYCERYL TRINITRATE) [Concomitant]
  5. BISOLVON (BROMHEXINE HYDROCHLORIDE) [Concomitant]
  6. LUPRAC (TORASEMIDE) [Concomitant]
  7. ZYLORIC (ALLOPURINOL) [Concomitant]
  8. TAKEPRON (LANSOPRAZOLE) [Concomitant]
  9. CIPROXAN (CIPROFLOXACIN HYDROCHLORIDE) [Concomitant]
  10. ZOSYN (PIPERACILLIN SODIUM, TAZOBACTAM SODIUM) [Concomitant]
  11. ANCARON (AMIODARONE HYDROCHLORIDE) [Concomitant]

REACTIONS (2)
  - Thirst [None]
  - Diarrhoea [None]
